FAERS Safety Report 13657058 (Version 4)
Quarter: 2018Q2

REPORT INFORMATION
  Report Type: Spontaneous
  Country: US (occurrence: US)
  Receive Date: 20170615
  Receipt Date: 20180509
  Transmission Date: 20180711
  Serious: Yes (Other)
  Sender: FDA-Public Use
  Company Number: US-BAYER-2017-115982

PATIENT
  Age: 28 Year
  Sex: Female
  Weight: 78 kg

DRUGS (1)
  1. SKYLA [Suspect]
     Active Substance: LEVONORGESTREL
     Indication: CONTRACEPTION
     Dosage: 14 MCG/24HR, CONT
     Route: 015
     Dates: start: 20150212, end: 20170612

REACTIONS (6)
  - Abortion spontaneous [None]
  - Device expulsion [None]
  - Pregnancy with contraceptive device [None]
  - Drug ineffective [None]
  - Pelvic pain [None]
  - Abdominal pain lower [None]

NARRATIVE: CASE EVENT DATE: 2017
